FAERS Safety Report 8304705-1 (Version None)
Quarter: 2012Q2

REPORT INFORMATION
  Report Type: 
  Country: None (occurrence: None)
  Receive Date: 20120423
  Receipt Date: 20120417
  Transmission Date: 20120825
  Serious: Yes (Death)
  Sender: FDA-Public Use
  Company Number: JP-ASTRAZENECA-2012SE25277

PATIENT
  Age: 70 Year
  Sex: Male

DRUGS (7)
  1. GASCON [Concomitant]
     Route: 048
  2. NEXIUM [Suspect]
     Indication: GASTROOESOPHAGEAL REFLUX DISEASE
     Route: 048
     Dates: start: 20120118, end: 20120411
  3. SM [Concomitant]
     Route: 048
     Dates: start: 20120118, end: 20120411
  4. MOTILIUM [Concomitant]
     Route: 048
     Dates: start: 20120118, end: 20120411
  5. HANGE-KOBOKU-TO [Concomitant]
     Route: 048
     Dates: start: 20120202, end: 20120411
  6. KELNAC [Concomitant]
     Route: 048
     Dates: start: 20120118, end: 20120411
  7. MAGTECT [Concomitant]
     Route: 048
     Dates: start: 20120118, end: 20120411

REACTIONS (1)
  - AORTIC ANEURYSM RUPTURE [None]
